FAERS Safety Report 18036871 (Version 2)
Quarter: 2021Q3

REPORT INFORMATION
  Report Type: Report from Study
  Country: US (occurrence: US)
  Receive Date: 20200717
  Receipt Date: 20210906
  Transmission Date: 20211014
  Serious: Yes (Death, Other)
  Sender: FDA-Public Use
  Company Number: US-ACADIA PHARMACEUTICALS INC.-ACA-2020-PIM-002116

PATIENT
  Age: 78 Year
  Sex: Male

DRUGS (4)
  1. NUPLAZID [Suspect]
     Active Substance: PIMAVANSERIN TARTRATE
     Indication: HALLUCINATION
     Dosage: TAKE 2 CAPSULES ON MONDAY, WEDNESDAY, FRIDAY AND 1 CAPSULE ON SUNDAY, TUESDAY, THURSDAY, SATURDAY
     Route: 048
     Dates: start: 20200304
  2. NUPLAZID [Suspect]
     Active Substance: PIMAVANSERIN TARTRATE
     Indication: PARKINSON^S DISEASE PSYCHOSIS
     Dosage: 34 MILLIGRAM, QD
     Route: 048
  3. NUPLAZID [Suspect]
     Active Substance: PIMAVANSERIN TARTRATE
     Dosage: TAKE 2 CAPSULES ON MONDAY, WEDNESDAY, FRIDAY AND 1 CAPSULE ON SUNDAY, TUESDAY, THURSDAY, SATURDAY
     Route: 048
  4. NUPLAZID [Suspect]
     Active Substance: PIMAVANSERIN TARTRATE
     Indication: DELUSION
     Dosage: TOOK MORE NUPALZID THEN WAS PRESCRIBED

REACTIONS (3)
  - Overdose [Unknown]
  - Death [Fatal]
  - Overdose [Unknown]

NARRATIVE: CASE EVENT DATE: 20200304
